FAERS Safety Report 5330519-0 (Version None)
Quarter: 2007Q2

REPORT INFORMATION
  Report Type: 
  Country: None (occurrence: None)
  Receive Date: 20070521
  Receipt Date: 20070518
  Transmission Date: 20071010
  Serious: Yes (Hospitalization)
  Sender: FDA-Public Use
  Company Number: SG-GENENTECH-241582

PATIENT
  Sex: Female

DRUGS (12)
  1. FLUOROURACIL [Suspect]
     Indication: BREAST CANCER METASTATIC
     Dosage: 975 MG, Q3W
     Route: 042
     Dates: start: 20061011, end: 20070507
  2. BLINDED BEVACIZUMAB [Suspect]
     Indication: BREAST CANCER METASTATIC
     Dosage: 975 MG, Q3W
     Route: 042
     Dates: start: 20061011, end: 20070507
  3. BLINDED CAPECITABINE [Suspect]
     Indication: BREAST CANCER METASTATIC
     Dosage: 975 MG, Q3W
     Route: 042
     Dates: start: 20061011, end: 20070507
  4. CYCLOPHOSPHAMIDE [Suspect]
     Indication: BREAST CANCER METASTATIC
     Dosage: 975 MG, Q3W
     Route: 042
     Dates: start: 20061011, end: 20070507
  5. BLINDED DOCETAXEL [Suspect]
     Indication: BREAST CANCER METASTATIC
     Dosage: 975 MG, Q3W
     Route: 042
     Dates: start: 20061011, end: 20070507
  6. DOXORUBICIN HCL [Suspect]
     Indication: BREAST CANCER METASTATIC
     Dosage: 975 MG, Q3W
     Route: 042
     Dates: start: 20061011, end: 20070507
  7. EPIRUBICIN [Suspect]
     Indication: BREAST CANCER METASTATIC
     Dosage: 975 MG, Q3W
     Route: 042
     Dates: start: 20061011, end: 20070507
  8. BLINDED NO STUDY DRUG ADMINISTERED [Suspect]
     Indication: BREAST CANCER METASTATIC
     Dosage: 975 MG, Q3W
     Route: 042
     Dates: start: 20061011, end: 20070507
  9. BLINDED PACLITAXEL [Suspect]
     Indication: BREAST CANCER METASTATIC
     Dosage: 975 MG, Q3W
     Route: 042
     Dates: start: 20061011, end: 20070507
  10. BLINDED PLACEBO [Suspect]
     Indication: BREAST CANCER METASTATIC
     Dosage: 975 MG, Q3W
     Route: 042
     Dates: start: 20061011, end: 20070507
  11. DOXORUBICIN HCL [Concomitant]
     Indication: BREAST CANCER METASTATIC
     Dosage: 50 MG/M2, UNK
     Route: 042
     Dates: start: 20061011
  12. CYCLOPHOSPHAMIDE [Concomitant]
     Indication: BREAST CANCER METASTATIC
     Dosage: 500 MG/M2, UNK
     Route: 042
     Dates: start: 20061011

REACTIONS (1)
  - CHEST PAIN [None]
